FAERS Safety Report 18511279 (Version 2)
Quarter: 2020Q4

REPORT INFORMATION
  Report Type: Report from Study
  Country: None (occurrence: DE)
  Receive Date: 20201117
  Receipt Date: 20201204
  Transmission Date: 20210114
  Serious: Yes (Death)
  Sender: FDA-Public Use
  Company Number: DE-ABBVIE-20K-062-3639739-00

PATIENT
  Age: 79 Year
  Sex: Male

DRUGS (2)
  1. DUODOPA [Suspect]
     Active Substance: CARBIDOPA\LEVODOPA
  2. DUODOPA [Suspect]
     Active Substance: CARBIDOPA\LEVODOPA
     Indication: PARKINSON^S DISEASE
     Dosage: MD 8 ML, CRD 2.8 ML/H, ED 1.2 ML
     Route: 050
     Dates: start: 20200924, end: 20201109

REACTIONS (4)
  - Clostridial infection [Not Recovered/Not Resolved]
  - General physical health deterioration [Not Recovered/Not Resolved]
  - Death [Fatal]
  - Cachexia [Not Recovered/Not Resolved]

NARRATIVE: CASE EVENT DATE: 2020
